FAERS Safety Report 22373813 (Version 1)
Quarter: 2023Q2

REPORT INFORMATION
  Report Type: Spontaneous
  Country: US (occurrence: US)
  Receive Date: 20230526
  Receipt Date: 20230526
  Transmission Date: 20230722
  Serious: No
  Sender: FDA-Public Use
  Company Number: US-AMGEN-USASP2023088908

PATIENT
  Age: 33 Year
  Sex: Female

DRUGS (6)
  1. IVABRADINE [Suspect]
     Active Substance: IVABRADINE
     Indication: Sinus tachycardia
     Dosage: UNK
     Route: 065
  2. IVABRADINE [Suspect]
     Active Substance: IVABRADINE
     Indication: Off label use
  3. FLECAINIDE [Concomitant]
     Active Substance: FLECAINIDE
     Indication: Sinus tachycardia
     Dosage: UNK
     Route: 065
  4. SOTALOL [Concomitant]
     Active Substance: SOTALOL
     Indication: Sinus tachycardia
     Dosage: UNK
     Route: 065
  5. DOFETILIDE [Concomitant]
     Active Substance: DOFETILIDE
     Indication: Sinus tachycardia
     Dosage: UNK
     Route: 065
  6. ISOPROTERENOL [Concomitant]
     Active Substance: ISOPROTERENOL
     Indication: Product used for unknown indication
     Dosage: UNK
     Route: 065

REACTIONS (2)
  - Drug ineffective for unapproved indication [Unknown]
  - Off label use [Unknown]
